FAERS Safety Report 6840013-3 (Version None)
Quarter: 2010Q3

REPORT INFORMATION
  Report Type: 
  Country: None (occurrence: None)
  Receive Date: 20100713
  Receipt Date: 20100713
  Transmission Date: 20110219
  Serious: Yes (Other)
  Sender: FDA-Public Use
  Company Number: None

PATIENT
  Age: 55 Year
  Sex: Female
  Weight: 72.57 kg

DRUGS (1)
  1. PRIVIGEN [Suspect]
     Indication: MULTIPLE SCLEROSIS
     Dosage: 73 GM QMO. IV
     Route: 042
     Dates: start: 20100617

REACTIONS (1)
  - STEVENS-JOHNSON SYNDROME [None]
